FAERS Safety Report 5242862-4 (Version None)
Quarter: 2007Q1

REPORT INFORMATION
  Report Type: 
  Country: None (occurrence: None)
  Receive Date: 20070215
  Receipt Date: 20070201
  Transmission Date: 20070707
  Serious: Yes (Hospitalization)
  Sender: FDA-Public Use
  Company Number: 2007S1000987

PATIENT
  Age: 36 Year
  Sex: Female
  Weight: 95.2554 kg

DRUGS (11)
  1. PHENYTOIN SODIUM [Suspect]
     Indication: ANEURYSM
     Dosage: SEE IMAGE
     Route: 048
     Dates: start: 20000101, end: 20061228
  2. PHENYTOIN SODIUM [Suspect]
     Indication: CONVULSION
     Dosage: SEE IMAGE
     Route: 048
     Dates: start: 20000101, end: 20061228
  3. PHENYTOIN SODIUM [Suspect]
     Indication: ANEURYSM
     Dosage: SEE IMAGE
     Route: 048
     Dates: start: 20061228
  4. PHENYTOIN SODIUM [Suspect]
     Indication: CONVULSION
     Dosage: SEE IMAGE
     Route: 048
     Dates: start: 20061228
  5. TRAZODONE HYDROCHLORIDE [Concomitant]
  6. PHENOBARBITAL SODIUM 100MG CAP [Concomitant]
  7. PAROXETINE HYDROCHLORIDE [Concomitant]
  8. METOPROLOL TARTRATE [Concomitant]
  9. HYDROCHLOROTHIAZIDE [Concomitant]
  10. ASPIRIN [Concomitant]
  11. TYLOX /00446701/ [Concomitant]

REACTIONS (6)
  - ANTICONVULSANT DRUG LEVEL DECREASED [None]
  - CONFUSIONAL STATE [None]
  - CONVULSION [None]
  - GRAND MAL CONVULSION [None]
  - INTRACRANIAL HYPOTENSION [None]
  - UPPER LIMB FRACTURE [None]
